FAERS Safety Report 6612557-0 (Version None)
Quarter: 2010Q1

REPORT INFORMATION
  Report Type: 
  Country: None (occurrence: None)
  Receive Date: 20100303
  Receipt Date: 20100223
  Transmission Date: 20100710
  Serious: Yes (Other)
  Sender: FDA-Public Use
  Company Number: US-JNJFOC-20100108288

PATIENT
  Sex: Female
  Weight: 51.26 kg

DRUGS (8)
  1. FENTANYL-100 [Suspect]
     Indication: PAIN IN EXTREMITY
     Dosage: NDC#: 0781-7112-55
     Route: 062
  2. FENTANYL-100 [Suspect]
     Indication: BACK PAIN
     Dosage: NDC#: 0781-7112-55
     Route: 062
  3. DURAGESIC-100 [Suspect]
     Indication: PAIN
     Dosage: NDC#: 0781-7112-55
     Route: 062
  4. XANAX [Concomitant]
     Indication: ANXIETY
     Route: 048
  5. ESTRADIOL [Concomitant]
     Indication: HORMONE REPLACEMENT THERAPY
     Route: 048
  6. SEROQUEL [Concomitant]
     Indication: DEPRESSION
     Route: 048
  7. TRAZODONE HCL [Concomitant]
     Indication: SLEEP DISORDER
     Route: 048
  8. MORPHINE SULFATE [Concomitant]
     Indication: BREAKTHROUGH PAIN
     Route: 048

REACTIONS (8)
  - ABNORMAL LOSS OF WEIGHT [None]
  - APPLICATION SITE REACTION [None]
  - DEPRESSION [None]
  - HYPERSENSITIVITY [None]
  - INTESTINAL FUNCTIONAL DISORDER [None]
  - MIGRAINE [None]
  - PRODUCT ADHESION ISSUE [None]
  - WRONG TECHNIQUE IN DRUG USAGE PROCESS [None]
